FAERS Safety Report 10178487 (Version 1)
Quarter: 2014Q2

REPORT INFORMATION
  Report Type: Spontaneous
  Country: US (occurrence: None)
  Receive Date: 20140516
  Receipt Date: 20140516
  Transmission Date: 20141212
  Serious: Yes (Other)
  Sender: FDA-Public Use
  Company Number: None

PATIENT
  Age: 63 Year
  Sex: Female
  Weight: 63.5 kg

DRUGS (1)
  1. ENALAPRIL [Suspect]
     Indication: BLOOD PRESSURE
     Dosage: 1 PILL ONCE DAILY ORAL
     Route: 048
     Dates: start: 20140512, end: 20140514

REACTIONS (3)
  - Blood pressure increased [None]
  - Product substitution issue [None]
  - Drug ineffective [None]
